FAERS Safety Report 22018690 (Version 1)
Quarter: 2023Q1

REPORT INFORMATION
  Report Type: Other
  Country: US (occurrence: None)
  Receive Date: 20230222
  Receipt Date: 20230222
  Transmission Date: 20230417
  Serious: No
  Sender: FDA-Public Use
  Company Number: US-ROCHE-3289738

PATIENT
  Age: 36 Year
  Sex: Male

DRUGS (2)
  1. OCREVUS [Suspect]
     Active Substance: OCRELIZUMAB
     Indication: Relapsing multiple sclerosis
     Dosage: 600 MG ONCE IN 6 MONTHS
     Route: 042
     Dates: start: 201909
  2. REBIF [Concomitant]
     Active Substance: INTERFERON BETA-1A

REACTIONS (1)
  - Influenza [Recovered/Resolved]
